FAERS Safety Report 12427290 (Version 1)
Quarter: 2016Q2

REPORT INFORMATION
  Report Type: Spontaneous
  Country: US (occurrence: US)
  Receive Date: 20160602
  Receipt Date: 20160602
  Transmission Date: 20160815
  Serious: Yes (Other)
  Sender: FDA-Public Use
  Company Number: US-AMGEN-USASP2016068045

PATIENT
  Sex: Female

DRUGS (4)
  1. FEMARA [Concomitant]
     Active Substance: LETROZOLE
     Dosage: UNK
     Dates: start: 20150309
  2. IBRANCE [Concomitant]
     Active Substance: PALBOCICLIB
  3. FASLODEX [Concomitant]
     Active Substance: FULVESTRANT
     Dosage: UNK
     Dates: start: 20140711
  4. XGEVA [Suspect]
     Active Substance: DENOSUMAB
     Indication: METASTASIS
     Dosage: UNK
     Route: 065

REACTIONS (9)
  - Pain [Unknown]
  - Myalgia [Unknown]
  - Blood test abnormal [Unknown]
  - Dizziness [Unknown]
  - Mobility decreased [Unknown]
  - Loss of consciousness [Unknown]
  - Frustration tolerance decreased [Unknown]
  - Muscle spasms [Unknown]
  - Feeling abnormal [Unknown]
